FAERS Safety Report 24701710 (Version 1)
Quarter: 2024Q4

REPORT INFORMATION
  Report Type: Spontaneous
  Country: US (occurrence: US)
  Receive Date: 20241205
  Receipt Date: 20241205
  Transmission Date: 20250115
  Serious: No
  Sender: SANOFI AVENTIS
  Company Number: US-SA-2024SA357176

PATIENT
  Age: 67 Year
  Sex: Male

DRUGS (13)
  1. DUPIXENT [Suspect]
     Active Substance: DUPILUMAB
     Indication: Neurodermatitis
     Dosage: 300.000MG QOW
     Route: 058
     Dates: start: 20241024
  2. ALBUTEROL SULFATE [Concomitant]
     Active Substance: ALBUTEROL SULFATE
  3. ASPIRIN [Concomitant]
     Active Substance: ASPIRIN
  4. ATORVASTATIN [Concomitant]
     Active Substance: ATORVASTATIN
  5. CLINDAMYCIN [Concomitant]
     Active Substance: CLINDAMYCIN
  6. DILTIAZEM [Concomitant]
     Active Substance: DILTIAZEM
  7. FEXOFENADINE [Concomitant]
     Active Substance: FEXOFENADINE HYDROCHLORIDE
  8. LOSARTAN [Concomitant]
     Active Substance: LOSARTAN
  9. OLANZAPINE [Concomitant]
     Active Substance: OLANZAPINE
  10. TIOTROPIUM BROMIDE [Concomitant]
     Active Substance: TIOTROPIUM BROMIDE
  11. FLONASE [Concomitant]
     Active Substance: FLUTICASONE PROPIONATE
  12. FINASTERIDE [Concomitant]
     Active Substance: FINASTERIDE
  13. NITROGLYCERIN [Concomitant]
     Active Substance: NITROGLYCERIN

REACTIONS (4)
  - Rash [Unknown]
  - Injection site pruritus [Unknown]
  - Injection site urticaria [Unknown]
  - Pruritus [Unknown]

NARRATIVE: CASE EVENT DATE: 20241030
